FAERS Safety Report 14565414 (Version 1)
Quarter: 2018Q1

REPORT INFORMATION
  Report Type: Spontaneous
  Country: GB (occurrence: GB)
  Receive Date: 20180223
  Receipt Date: 20180223
  Transmission Date: 20180509
  Serious: Yes (Other)
  Sender: FDA-Public Use
  Company Number: GB-SUN PHARMACEUTICAL INDUSTRIES LTD-2018RR-164237

PATIENT
  Age: 53 Year
  Sex: Male

DRUGS (4)
  1. MEMANTINE. [Suspect]
     Active Substance: MEMANTINE
     Indication: MAJOR DEPRESSION
     Dosage: 20 MG, DAILY
     Route: 065
  2. GALANTAMINE. [Suspect]
     Active Substance: GALANTAMINE
     Indication: MAJOR DEPRESSION
     Dosage: 4 MG, DAILY, DOSE INCREASED TO 8 MG DAILY
     Route: 065
  3. DONEPEZIL. [Suspect]
     Active Substance: DONEPEZIL
     Indication: MAJOR DEPRESSION
     Dosage: 10 MG, DAILY, PRESCRIBED IN MAY 2013
     Route: 065
  4. RIVASTIGMINE. [Suspect]
     Active Substance: RIVASTIGMINE
     Indication: MAJOR DEPRESSION
     Dosage: 4.2 MG, DAILY, PRESCRIBED IN JAN-2013, RESTARTED IN AUGUST-2013
     Route: 062

REACTIONS (7)
  - Therapeutic response unexpected [Unknown]
  - Salivary hypersecretion [Recovered/Resolved]
  - Pneumonia aspiration [Recovered/Resolved]
  - Oral pain [Recovered/Resolved]
  - Nausea [Recovered/Resolved]
  - Off label use [Unknown]
  - Headache [Recovered/Resolved]
